FAERS Safety Report 21283374 (Version 1)
Quarter: 2022Q3

REPORT INFORMATION
  Report Type: Spontaneous
  Country: EG (occurrence: EG)
  Receive Date: 20220901
  Receipt Date: 20220901
  Transmission Date: 20221027
  Serious: Yes (Life-Threatening, Other)
  Sender: FDA-Public Use
  Company Number: EG-MYLANLABS-2022M1090506

PATIENT
  Age: 50 Year
  Sex: Male

DRUGS (2)
  1. CISPLATIN [Suspect]
     Active Substance: CISPLATIN
     Indication: Oesophageal carcinoma
     Dosage: 130 MILLIGRAM, CYCLE 1
     Route: 042
     Dates: start: 20180403
  2. FLUOROURACIL [Suspect]
     Active Substance: FLUOROURACIL
     Indication: Oesophageal carcinoma
     Dosage: 1700 MILLIGRAM, CYCLE 1
     Route: 042
     Dates: start: 20180403

REACTIONS (2)
  - Myocardial ischaemia [Unknown]
  - Cardiotoxicity [Unknown]
